FAERS Safety Report 12528222 (Version 2)
Quarter: 2017Q3

REPORT INFORMATION
  Report Type: Spontaneous
  Country: US (occurrence: US)
  Receive Date: 20160705
  Receipt Date: 20170808
  Transmission Date: 20171127
  Serious: No
  Sender: FDA-Public Use
  Company Number: US-ASTRAZENECA-2016SE56815

PATIENT
  Sex: Male
  Weight: 69.9 kg

DRUGS (5)
  1. LASIX [Concomitant]
     Active Substance: FUROSEMIDE
     Indication: POLYURIA
  2. IRON [Concomitant]
     Active Substance: IRON
     Indication: ABDOMINAL DISCOMFORT
  3. PANTOPRAZOLE [Concomitant]
     Active Substance: PANTOPRAZOLE
  4. SYMBICORT [Suspect]
     Active Substance: BUDESONIDE\FORMOTEROL FUMARATE DIHYDRATE
     Indication: ASTHMA
     Dosage: 80/4.5 MCG TWO PUFFS TWICE A DAY, TWO TIMES A DAY
     Route: 055
     Dates: start: 2012
  5. TUDORZA PRESSAIR [Suspect]
     Active Substance: ACLIDINIUM BROMIDE
     Indication: ASTHMA
     Route: 055
     Dates: start: 2013

REACTIONS (3)
  - Intentional product misuse [Unknown]
  - Dementia [Unknown]
  - Product quality issue [Unknown]
